FAERS Safety Report 18913534 (Version 1)
Quarter: 2021Q1

REPORT INFORMATION
  Report Type: Spontaneous
  Country: US (occurrence: US)
  Receive Date: 20210219
  Receipt Date: 20210219
  Transmission Date: 20210420
  Serious: Yes (Other)
  Sender: FDA-Public Use
  Company Number: US-SA-2021SA054346

PATIENT
  Sex: Female

DRUGS (1)
  1. AUBAGIO [Suspect]
     Active Substance: TERIFLUNOMIDE
     Indication: MULTIPLE SCLEROSIS
     Dosage: UNK

REACTIONS (5)
  - Alopecia [Unknown]
  - Hypoaesthesia [Unknown]
  - Therapeutic response decreased [Unknown]
  - Multiple sclerosis relapse [Not Recovered/Not Resolved]
  - Depression [Unknown]
